FAERS Safety Report 24379160 (Version 1)
Quarter: 2024Q3

REPORT INFORMATION
  Report Type: Other
  Country: US (occurrence: None)
  Receive Date: 20240930
  Receipt Date: 20240930
  Transmission Date: 20241016
  Serious: No
  Sender: AVEVA
  Company Number: US-AVEVA-000747

PATIENT
  Age: 23 Year
  Sex: Male

DRUGS (2)
  1. NICOTINE [Suspect]
     Active Substance: NICOTINE
     Indication: Sleep related hypermotor epilepsy
     Dosage: UNK (7 MILLIGRAM/DAY)
     Route: 062
  2. CENOBAMATE [Concomitant]
     Active Substance: CENOBAMATE
     Indication: Sleep related hypermotor epilepsy
     Dosage: UNK
     Route: 065

REACTIONS (2)
  - Off label use [Unknown]
  - Treatment noncompliance [Unknown]
